FAERS Safety Report 7190331-7 (Version None)
Quarter: 2010Q4

REPORT INFORMATION
  Report Type: 
  Country: None (occurrence: None)
  Receive Date: 20101210
  Receipt Date: 20101201
  Transmission Date: 20110411
  Serious: Yes (Life-Threatening)
  Sender: FDA-Public Use
  Company Number: 023138

PATIENT
  Sex: Male
  Weight: 95 kg

DRUGS (9)
  1. NEUPRO [Suspect]
     Indication: RESTLESS LEGS SYNDROME
     Dosage: (2 MG QD TRANSDERMAL)
     Route: 062
     Dates: start: 20100705
  2. TRIAMPUR [Concomitant]
  3. MARCUMAR [Concomitant]
  4. TAMSULOSIN [Concomitant]
  5. INEGY [Concomitant]
  6. BISOHEXAL /00802603/ [Concomitant]
  7. RAMIPRIL [Concomitant]
  8. AMLODIPIN HEXAL  /00972401/ [Concomitant]
  9. NITRANGIN [Concomitant]

REACTIONS (2)
  - AMAUROSIS FUGAX [None]
  - TRANSIENT ISCHAEMIC ATTACK [None]
